FAERS Safety Report 9238697 (Version 1)
Quarter: 2013Q2

REPORT INFORMATION
  Report Type: Spontaneous
  Country: US (occurrence: US)
  Receive Date: 20130418
  Receipt Date: 20130418
  Transmission Date: 20140414
  Serious: No
  Sender: FDA-Public Use
  Company Number: US-BAYER-2013-041901

PATIENT
  Age: 0 Year
  Sex: Male
  Weight: 6 kg

DRUGS (1)
  1. BETASERON [Suspect]

REACTIONS (2)
  - Pallor [Recovered/Resolved]
  - Foetal exposure during pregnancy [None]
